FAERS Safety Report 7889105-0 (Version None)
Quarter: 2011Q4

REPORT INFORMATION
  Report Type: 
  Country: None (occurrence: None)
  Receive Date: 20111103
  Receipt Date: 20111026
  Transmission Date: 20120403
  Serious: Yes (Hospitalization)
  Sender: FDA-Public Use
  Company Number: FR-BRISTOL-MYERS SQUIBB COMPANY-16200651

PATIENT
  Age: 66 Year
  Sex: Male
  Weight: 116 kg

DRUGS (1)
  1. IPILIMUMAB [Suspect]
     Indication: METASTATIC MALIGNANT MELANOMA
     Dosage: RECENT INF ON 26-SEP-2011.
     Route: 058
     Dates: start: 20110630

REACTIONS (3)
  - DIARRHOEA [None]
  - HAEMORRHOIDAL HAEMORRHAGE [None]
  - DRUG ADMINISTRATION ERROR [None]
